FAERS Safety Report 8339498-5 (Version None)
Quarter: 2012Q2

REPORT INFORMATION
  Report Type: 
  Country: None (occurrence: None)
  Receive Date: 20120507
  Receipt Date: 20120430
  Transmission Date: 20120825
  Serious: Yes (Other)
  Sender: FDA-Public Use
  Company Number: US-BAYER-2012-042693

PATIENT
  Age: 30 Year
  Sex: Female

DRUGS (2)
  1. DROSPIRENONE AND ETHINYL ESTRADIOL [Suspect]
     Dosage: UNK
     Dates: start: 20100701, end: 20100801
  2. YAZ [Suspect]
     Dosage: UNK
     Dates: start: 20081105, end: 20090101

REACTIONS (1)
  - GALLBLADDER INJURY [None]
